FAERS Safety Report 6123044-0 (Version None)
Quarter: 2009Q1

REPORT INFORMATION
  Report Type: 
  Country: None (occurrence: None)
  Receive Date: 20090318
  Receipt Date: 20080218
  Transmission Date: 20090719
  Serious: No
  Sender: FDA-Public Use
  Company Number: US-AMGEN-KDL265904

PATIENT
  Sex: Female

DRUGS (4)
  1. NEULASTA [Suspect]
     Indication: CHEMOTHERAPY
     Dates: start: 20080212
  2. TAXOTERE [Concomitant]
  3. CYTOXAN [Concomitant]
  4. ADRIAMYCIN RDF [Concomitant]

REACTIONS (1)
  - PYREXIA [None]
